FAERS Safety Report 17203429 (Version 2)
Quarter: 2020Q1

REPORT INFORMATION
  Report Type: Spontaneous
  Country: US (occurrence: US)
  Receive Date: 20191226
  Receipt Date: 20200212
  Transmission Date: 20200409
  Serious: No
  Sender: FDA-Public Use
  Company Number: NVSC2019US079497

PATIENT
  Sex: Female

DRUGS (2)
  1. METHOTREXATE. [Suspect]
     Active Substance: METHOTREXATE
     Indication: LEUKAEMIA
     Route: 065
  2. DEOXUCOFORMYCIN [Suspect]
     Active Substance: PENTOSTATIN
     Indication: LEUKAEMIA
     Route: 065

REACTIONS (2)
  - Premature delivery [Unknown]
  - Maternal exposure during pregnancy [Unknown]
